FAERS Safety Report 10108791 (Version 2)
Quarter: 2014Q2

REPORT INFORMATION
  Report Type: Spontaneous
  Country: FI (occurrence: FI)
  Receive Date: 20140425
  Receipt Date: 20140507
  Transmission Date: 20141212
  Serious: Yes (Hospitalization, Other)
  Sender: FDA-Public Use
  Company Number: FI-ROCHE-1385896

PATIENT
  Age: 75 Year
  Sex: Male

DRUGS (21)
  1. BRICANYL TURBUHALER [Concomitant]
     Dosage: WHEN NEEDED
     Route: 065
  2. SYMBICORT TURBUHALER [Concomitant]
     Route: 065
  3. SPIRIVA [Concomitant]
     Route: 065
  4. OMEPRAZOLE [Concomitant]
     Route: 065
  5. SIMVASTATIN [Concomitant]
     Route: 065
  6. ROACTEMRA [Suspect]
     Indication: VASCULITIS
     Dosage: TOTAL DOSE 540 MG
     Route: 042
     Dates: start: 20131008
  7. ROACTEMRA [Suspect]
     Route: 042
     Dates: start: 20131107
  8. ROACTEMRA [Suspect]
     Route: 042
     Dates: start: 20131205
  9. ROACTEMRA [Suspect]
     Route: 042
     Dates: start: 20140102
  10. ROACTEMRA [Suspect]
     Route: 042
     Dates: start: 20140303
  11. ROACTEMRA [Suspect]
     Route: 042
     Dates: start: 20140402
  12. PROLIA [Concomitant]
     Indication: OSTEOPOROSIS
     Route: 042
     Dates: start: 20140212
  13. VI-SIBLIN [Concomitant]
     Route: 065
  14. CALCICHEW D3 FORTE [Concomitant]
  15. KALEORID [Concomitant]
     Route: 065
  16. BISOPROLOL [Concomitant]
     Route: 065
  17. CO-DIOVANE [Concomitant]
     Route: 065
  18. OMNIC [Concomitant]
     Route: 065
  19. FINASTERIDE [Concomitant]
     Route: 065
  20. PREDNISOLON [Concomitant]
  21. TENOX (AMLODIPINE) [Concomitant]
     Route: 065

REACTIONS (12)
  - Abdominal pain [Recovered/Resolved]
  - Vomiting [Recovered/Resolved]
  - Gastrointestinal hypomotility [Recovered/Resolved]
  - Weight decreased [Recovered/Resolved]
  - Diaphragmatic hernia [Recovered/Resolved]
  - Oesophagitis [Recovered/Resolved]
  - Gastrointestinal neoplasm [Recovered/Resolved]
  - Enteritis infectious [Recovered/Resolved]
  - Small intestinal obstruction [Recovered/Resolved]
  - Jejunal perforation [Recovered/Resolved]
  - Pancreatic cyst [Recovered/Resolved]
  - Pancreatic neoplasm [Recovered/Resolved]
